FAERS Safety Report 5796572-5 (Version None)
Quarter: 2008Q2

REPORT INFORMATION
  Report Type: 
  Country: None (occurrence: None)
  Receive Date: 20080627
  Receipt Date: 20080617
  Transmission Date: 20081010
  Serious: Yes (Other)
  Sender: FDA-Public Use
  Company Number: CHPA2008US10518

PATIENT
  Sex: Male
  Weight: 90.7 kg

DRUGS (1)
  1. VOLTAREN [Suspect]
     Dosage: TOPICAL
     Route: 061

REACTIONS (1)
  - RENAL FAILURE [None]
